FAERS Safety Report 9123359 (Version 2)
Quarter: 2016Q1

REPORT INFORMATION
  Report Type: Spontaneous
  Country: US (occurrence: US)
  Receive Date: 20130115
  Receipt Date: 20160302
  Transmission Date: 20160526
  Serious: No
  Sender: FDA-Public Use
  Company Number: US-RB-048131-13

PATIENT
  Age: 2 Year
  Sex: Male

DRUGS (2)
  1. CHILDRENS MUCINEX COUGH [Suspect]
     Active Substance: DEXTROMETHORPHAN HYDROBROMIDE\GUAIFENESIN
  2. CHILDRENS MUCINEX COUGH [Suspect]
     Active Substance: DEXTROMETHORPHAN HYDROBROMIDE\GUAIFENESIN
     Indication: PRODUCT USED FOR UNKNOWN INDICATION
     Dosage: 2.50ML. ,FREQUENCY UNK
     Route: 048
     Dates: start: 20130101

REACTIONS (3)
  - Accidental exposure to product by child [Recovered/Resolved]
  - Epistaxis [Recovered/Resolved]
  - Drug administered to patient of inappropriate age [None]

NARRATIVE: CASE EVENT DATE: 20130101
